FAERS Safety Report 16678548 (Version 1)
Quarter: 2019Q3

REPORT INFORMATION
  Report Type: Spontaneous
  Country: US (occurrence: US)
  Receive Date: 20190622
  Receipt Date: 20190622
  Transmission Date: 20191004
  Serious: No
  Sender: FDA-Public Use
  Company Number: None

PATIENT
  Age: 59 Year
  Sex: Male

DRUGS (1)
  1. HUMIRA [Suspect]
     Active Substance: ADALIMUMAB
     Indication: PSORIATIC ARTHROPATHY
     Dosage: ?          OTHER FREQUENCY:Q14DAYS;?
     Route: 058
     Dates: start: 20190407

REACTIONS (3)
  - Rash [None]
  - Nasopharyngitis [None]
  - Sinusitis [None]

NARRATIVE: CASE EVENT DATE: 20190601
